FAERS Safety Report 9493224 (Version 3)
Quarter: 2013Q3

REPORT INFORMATION
  Report Type: Report from Study
  Country: US (occurrence: US)
  Receive Date: 20130902
  Receipt Date: 20130919
  Transmission Date: 20140515
  Serious: Yes (Other)
  Sender: FDA-Public Use
  Company Number: PHEH2013US007843

PATIENT
  Sex: Male
  Weight: 104.31 kg

DRUGS (23)
  1. ZOMETA [Suspect]
     Indication: PLASMA CELL MYELOMA
     Dosage: 4 MG/ 5 ML VIAL (2 MG, EVERY 21 DAYS)
     Route: 042
  2. CELEBREX [Concomitant]
     Dosage: UNK UKN, UNK
  3. CLOBETASOL 0.05% [Concomitant]
  4. DEXAMETHASONE [Concomitant]
     Dosage: 2 MG, UNK
  5. IRON [Concomitant]
     Dosage: UNK UKN, UNK
  6. ISOSORBIDE MONONITRATE [Concomitant]
     Dosage: 10 MG, UNK
  7. LYRICA [Concomitant]
     Dosage: 75 MG, UNK
  8. METHENAMINE HIPPURATE [Concomitant]
     Dosage: 1 G, UNK
  9. METOPROLOL [Concomitant]
     Dosage: 50 MG, UNK
  10. MINOCYCLIN [Concomitant]
     Dosage: 50 MG, UNK
  11. MORPHINE SULFATE [Concomitant]
     Dosage: 20 MG, UNK
  12. PERCOCET [Concomitant]
     Dosage: 7.5-325, UNK
  13. ZOCOR [Concomitant]
     Dosage: 5 MG, UNK
  14. COSOPT [Concomitant]
  15. NEURONTIN [Concomitant]
     Dosage: 300 MG, UNK
  16. ISOSORB                            /00586302/ [Concomitant]
     Dosage: 10 MG, UNK
  17. METANX [Concomitant]
     Dosage: UNK UKN, UNK
  18. MORPHINE SULPHATE [Concomitant]
     Dosage: 20 MG, UNK
  19. MIRALAX [Concomitant]
     Dosage: 3350 NF
  20. VIT-C [Concomitant]
     Dosage: 500 MG, UNK
  21. CONVALLARIA MAJALIS\CRATAEGUS LAEVIGATA LEAF\PROXYPHYLLINE [Concomitant]
     Dosage: UNK UKN, UNK
  22. REVLIMID [Concomitant]
     Dosage: 10 MG, UNK
  23. VELCADE [Concomitant]
     Dosage: 3.5 MG, UNK

REACTIONS (3)
  - Neuropathy peripheral [Unknown]
  - Platelet count decreased [Recovered/Resolved]
  - Blood creatinine increased [Unknown]
